FAERS Safety Report 10744850 (Version 5)
Quarter: 2015Q2

REPORT INFORMATION
  Report Type: Spontaneous
  Country: US (occurrence: US)
  Receive Date: 20150128
  Receipt Date: 20150514
  Transmission Date: 20150821
  Serious: Yes (Hospitalization, Other)
  Sender: FDA-Public Use
  Company Number: US-PFIZER INC-2015031202

PATIENT
  Age: 64 Year
  Sex: Female
  Weight: 104 kg

DRUGS (5)
  1. CRESTOR [Suspect]
     Active Substance: ROSUVASTATIN CALCIUM
     Indication: BLOOD CHOLESTEROL
     Dosage: 40 MG, 1X/DAY
     Dates: end: 2014
  2. VERAPAMIL HCL [Suspect]
     Active Substance: VERAPAMIL HYDROCHLORIDE
     Indication: BLOOD CHOLESTEROL
     Dosage: 180 MG, 1X/DAY
     Dates: end: 2014
  3. VERAPAMIL HCL [Suspect]
     Active Substance: VERAPAMIL HYDROCHLORIDE
     Indication: BLOOD TRIGLYCERIDES
  4. REVATIO [Suspect]
     Active Substance: SILDENAFIL CITRATE
     Indication: PULMONARY HYPERTENSION
     Dosage: 20 MG, 3X/DAY
  5. REVATIO [Suspect]
     Active Substance: SILDENAFIL CITRATE
     Dosage: UNK

REACTIONS (12)
  - Splenomegaly [Recovered/Resolved]
  - Liver function test abnormal [Recovered/Resolved]
  - Back injury [Recovered/Resolved]
  - Renal disorder [Unknown]
  - Fall [Recovered/Resolved]
  - Spinal column injury [Recovered/Resolved]
  - Contusion [Recovered/Resolved]
  - Weight decreased [Unknown]
  - Malaise [Recovering/Resolving]
  - Blood potassium decreased [Unknown]
  - Hepatomegaly [Not Recovered/Not Resolved]
  - Hepatic cirrhosis [Recovered/Resolved]

NARRATIVE: CASE EVENT DATE: 2014
